FAERS Safety Report 6558870-7 (Version None)
Quarter: 2010Q1

REPORT INFORMATION
  Report Type: 
  Country: None (occurrence: None)
  Receive Date: 20100129
  Receipt Date: 20100119
  Transmission Date: 20100710
  Serious: Yes (Other)
  Sender: FDA-Public Use
  Company Number: FR-PFIZER INC-2010007439

PATIENT
  Age: 65 Year
  Sex: Female

DRUGS (8)
  1. SUTENT [Suspect]
     Indication: RENAL CANCER
     Dosage: UNK
     Dates: start: 20080101
  2. NEXIUM [Concomitant]
     Dosage: UNK
  3. LIPANTHYL [Concomitant]
     Dosage: UNK
  4. LANTUS [Concomitant]
     Dosage: UNK
  5. LEVOTHYROXINE SODIUM [Concomitant]
     Dosage: UNK
  6. FORLAX [Concomitant]
     Dosage: UNK
  7. TARDYFERON [Concomitant]
     Dosage: UNK
  8. MORPHINE [Concomitant]

REACTIONS (2)
  - ARTERIAL DISORDER [None]
  - ULCER [None]
